FAERS Safety Report 9580409 (Version 1)
Quarter: 2013Q3

REPORT INFORMATION
  Report Type: Spontaneous
  Country: US (occurrence: None)
  Receive Date: 20130916
  Receipt Date: 20130916
  Transmission Date: 20140515
  Serious: Yes (Other)
  Sender: FDA-Public Use
  Company Number: JPI-P-032174

PATIENT
  Age: 71 Year
  Sex: Male
  Weight: 117.94 kg

DRUGS (23)
  1. XYREM [Suspect]
     Indication: NARCOLEPSY
     Route: 048
     Dates: start: 20130327, end: 2013
  2. GLYBURIDE/METFORMIN [Concomitant]
  3. DUTASTERIDE [Concomitant]
  4. TESTOSTERONE GEL (75 MILLIGRAM) [Concomitant]
  5. DULOXETINE HYDROCHLORIDE [Concomitant]
  6. CLOPIDOGREL BISULFATE [Concomitant]
  7. TADALAFIL [Concomitant]
  8. ARMODAFINIL [Concomitant]
  9. DOXYCYCLINE [Concomitant]
  10. RANOLAZINE [Concomitant]
  11. ACETYLSALICYLIC ACID [Concomitant]
  12. MULTIVITAMINS [Concomitant]
  13. VITAMIN D3 [Concomitant]
  14. OMEGA-3 [Concomitant]
  15. CAYENNE PEPPER [Concomitant]
  16. CALCIUM/MAGNESIUM/ZINC [Concomitant]
  17. VITAMIN C [Concomitant]
  18. L-LYSINE [Concomitant]
  19. ADRENO-LYPH [Concomitant]
  20. IODINE [Concomitant]
  21. VITAMIN B-12 [Concomitant]
  22. FLAXSEED OIL [Concomitant]
  23. MAGNESIUM [Concomitant]

REACTIONS (1)
  - Hypertension [None]
